FAERS Safety Report 11343663 (Version 2)
Quarter: 2015Q3

REPORT INFORMATION
  Report Type: Spontaneous
  Country: US (occurrence: None)
  Receive Date: 20150804
  Receipt Date: 20150818
  Transmission Date: 20151125
  Serious: Yes (Hospitalization)
  Sender: FDA-Public Use
  Company Number: 1713747-2015-999238

PATIENT
  Age: 50 Year
  Sex: Female
  Weight: 72.5 kg

DRUGS (1)
  1. DELFLEX [Suspect]
     Active Substance: CALCIUM CHLORIDE\DEXTROSE MONOHYDRATE\MAGNESIUM CHLORIDE\SODIUM CHLORIDE\SODIUM LACTATE
     Indication: PERITONEAL DIALYSIS
     Route: 033
     Dates: start: 20120315

REACTIONS (5)
  - Abdominal pain [None]
  - Anaemia [None]
  - Sepsis [None]
  - Wrong technique in product usage process [None]
  - Pneumonia [None]

NARRATIVE: CASE EVENT DATE: 20150725
